FAERS Safety Report 8722839 (Version 6)
Quarter: 2013Q3

REPORT INFORMATION
  Report Type: Spontaneous
  Country: US (occurrence: US)
  Receive Date: 20120814
  Receipt Date: 20130820
  Transmission Date: 20140515
  Serious: Yes (Hospitalization, Other)
  Sender: FDA-Public Use
  Company Number: US-009507513-1208USA001526

PATIENT
  Sex: Female

DRUGS (3)
  1. FOSAMAX [Suspect]
     Indication: OSTEOPOROSIS
     Dosage: 70 MG, UNK
     Route: 048
     Dates: start: 2000, end: 2006
  2. ACTONEL [Suspect]
     Indication: OSTEOPOROSIS
     Dosage: 35 MG, UNK
     Dates: start: 2006, end: 2008
  3. BONIVA [Suspect]
     Indication: OSTEOPOROSIS
     Dosage: 150 MG, UNK
     Dates: start: 2008, end: 2012

REACTIONS (36)
  - Femur fracture [Unknown]
  - Open reduction of fracture [Unknown]
  - Hip fracture [Unknown]
  - Hip arthroplasty [Unknown]
  - Shoulder arthroplasty [Unknown]
  - Procedural complication [Unknown]
  - Humerus fracture [Unknown]
  - Haemoglobin decreased [Unknown]
  - Rotator cuff syndrome [Unknown]
  - Joint dislocation [Unknown]
  - Femur fracture [Unknown]
  - Low turnover osteopathy [Unknown]
  - Depression [Not Recovered/Not Resolved]
  - Anxiety [Not Recovered/Not Resolved]
  - Urinary tract infection [Unknown]
  - Urinary retention [Unknown]
  - Hypoxia [Unknown]
  - Atelectasis [Unknown]
  - Chronic obstructive pulmonary disease [Unknown]
  - Pleural effusion [Unknown]
  - Vertebroplasty [Unknown]
  - Palpitations [Unknown]
  - Hypothyroidism [Unknown]
  - Asthma [Unknown]
  - Polyarthritis [Unknown]
  - Device related infection [Unknown]
  - Lumbar vertebral fracture [Unknown]
  - Rib fracture [Unknown]
  - Cough [Unknown]
  - Arthritis [Unknown]
  - Arthralgia [Unknown]
  - Musculoskeletal pain [Unknown]
  - Pain in extremity [Unknown]
  - Headache [Unknown]
  - Constipation [Unknown]
  - Gastrooesophageal reflux disease [Unknown]
